FAERS Safety Report 8327559-6 (Version None)
Quarter: 2012Q2

REPORT INFORMATION
  Report Type: 
  Country: None (occurrence: None)
  Receive Date: 20120502
  Receipt Date: 20120424
  Transmission Date: 20120825
  Serious: Yes (Hospitalization)
  Sender: FDA-Public Use
  Company Number: US-BAYER-201041749NA

PATIENT
  Age: 29 Year
  Sex: Female
  Weight: 77 kg

DRUGS (3)
  1. DROSPIRENONE AND ETHINYL ESTRADIOL [Suspect]
     Indication: PRODUCT USED FOR UNKNOWN INDICATION
     Dosage: UNK
     Route: 048
     Dates: start: 20081001, end: 20090401
  2. METRONIDAZOLE [Concomitant]
     Dosage: 0.75 %, UNK
     Dates: start: 20071110, end: 20090417
  3. YASMIN [Suspect]
     Indication: PRODUCT USED FOR UNKNOWN INDICATION
     Dosage: UNK
     Route: 048
     Dates: start: 20071101, end: 20080401

REACTIONS (2)
  - PULMONARY EMBOLISM [None]
  - PAIN [None]
